FAERS Safety Report 6716172-X (Version None)
Quarter: 2010Q2

REPORT INFORMATION
  Report Type: 
  Country: None (occurrence: None)
  Receive Date: 20100507
  Receipt Date: 20100429
  Transmission Date: 20101027
  Serious: Yes (Other)
  Sender: FDA-Public Use
  Company Number: US-PFIZER INC-2010054252

PATIENT
  Age: 5 Month
  Sex: Male

DRUGS (1)
  1. CEFDINIR [Suspect]
     Indication: OTITIS MEDIA

REACTIONS (1)
  - HAEMATOCHEZIA [None]
